FAERS Safety Report 11853122 (Version 2)
Quarter: 2015Q4

REPORT INFORMATION
  Report Type: Report from Study
  Country: ES (occurrence: ES)
  Receive Date: 20151218
  Receipt Date: 20151228
  Transmission Date: 20160305
  Serious: Yes (Hospitalization)
  Sender: FDA-Public Use
  Company Number: ES-ABBVIE-15P-144-1513421-00

PATIENT
  Sex: Male

DRUGS (1)
  1. DUODOPA [Suspect]
     Active Substance: CARBIDOPA\LEVODOPA
     Indication: PARKINSON^S DISEASE
     Route: 050
     Dates: start: 20151127, end: 20151211

REACTIONS (9)
  - Impaired gastric emptying [Unknown]
  - Tooth disorder [Unknown]
  - Device dislocation [Unknown]
  - Pyrexia [Unknown]
  - Stoma site erythema [Unknown]
  - Pneumoperitoneum [Unknown]
  - Fungal infection [Unknown]
  - Abdominal distension [Unknown]
  - Constipation [Unknown]

NARRATIVE: CASE EVENT DATE: 20151130
